FAERS Safety Report 8221101-6 (Version None)
Quarter: 2012Q1

REPORT INFORMATION
  Report Type: 
  Country: None (occurrence: None)
  Receive Date: 20120320
  Receipt Date: 20120308
  Transmission Date: 20120608
  Serious: Yes (Other)
  Sender: FDA-Public Use
  Company Number: ZA-ELI_LILLY_AND_COMPANY-ZA201203003474

PATIENT
  Age: 77 Year
  Sex: Male

DRUGS (4)
  1. CRESTOR [Concomitant]
     Indication: BLOOD CHOLESTEROL INCREASED
     Dosage: 5 MG, QD
     Route: 048
  2. ASPIRIN [Concomitant]
     Dosage: 81 MG, QD
     Route: 048
     Dates: start: 20111201
  3. EFFIENT [Suspect]
     Indication: STENT PLACEMENT
     Dosage: 5 MG, QD
     Route: 048
     Dates: start: 20111201
  4. TELMISARTAN [Concomitant]
     Indication: HYPERTENSION
     Dosage: 40 MG, QD
     Route: 048
     Dates: start: 20111201

REACTIONS (2)
  - RENAL PAIN [None]
  - RENAL DISORDER [None]
